FAERS Safety Report 16446870 (Version 4)
Quarter: 2023Q1

REPORT INFORMATION
  Report Type: Spontaneous
  Country: BR (occurrence: BR)
  Receive Date: 20190618
  Receipt Date: 20230317
  Transmission Date: 20230418
  Serious: Yes (Other)
  Sender: FDA-Public Use
  Company Number: BR-PFIZER INC-2019009924

PATIENT
  Age: 51 Year
  Sex: Male

DRUGS (10)
  1. LORAZEPAM [Suspect]
     Active Substance: LORAZEPAM
     Indication: Anxiety disorder
     Dosage: 4 MG, DAILY (2 TABLETS, DAILY PER NIGHT)
     Dates: start: 2004, end: 20190102
  2. LORAZEPAM [Suspect]
     Active Substance: LORAZEPAM
     Indication: Insomnia
     Dosage: 2 MG, DAILY
  3. LORAZEPAM [Suspect]
     Active Substance: LORAZEPAM
     Dosage: 4 MG, DAILY (2 TABLETS, DAILY PER NIGHT)
     Dates: start: 2004, end: 20190102
  4. LORAZEPAM [Suspect]
     Active Substance: LORAZEPAM
     Dosage: 2 MG, UNK
  5. LORAZEPAM [Suspect]
     Active Substance: LORAZEPAM
     Dosage: 2 MG, DAILY
  6. AVONEX [Concomitant]
     Active Substance: INTERFERON BETA-1A
     Indication: Multiple sclerosis
     Dosage: EVERY THURSDAY
  7. AVONEX [Concomitant]
     Active Substance: INTERFERON BETA-1A
     Indication: Spinal cord disorder
  8. ALDOMET [Concomitant]
     Active Substance: METHYLDOPA
     Indication: Sarcopenia
  9. TRAZODONE HYDROCHLORIDE [Concomitant]
     Active Substance: TRAZODONE HYDROCHLORIDE
     Indication: Sarcopenia
  10. CREATINA [Concomitant]
     Indication: Sarcopenia

REACTIONS (21)
  - Off label use [Unknown]
  - Product use issue [Unknown]
  - Xerophthalmia [Unknown]
  - Drug dependence [Unknown]
  - Withdrawal syndrome [Not Recovered/Not Resolved]
  - Feeling abnormal [Not Recovered/Not Resolved]
  - Feeling of despair [Not Recovered/Not Resolved]
  - Anxiety [Not Recovered/Not Resolved]
  - Dry skin [Unknown]
  - Visual impairment [Unknown]
  - Dry mouth [Unknown]
  - Emotional distress [Not Recovered/Not Resolved]
  - Nervousness [Not Recovered/Not Resolved]
  - Dysphemia [Not Recovered/Not Resolved]
  - Disorientation [Unknown]
  - Nasal dryness [Unknown]
  - Dry throat [Unknown]
  - Tongue dry [Unknown]
  - Loss of personal independence in daily activities [Unknown]
  - Drug ineffective [Unknown]
  - Wrong technique in product usage process [Unknown]

NARRATIVE: CASE EVENT DATE: 20190102
